FAERS Safety Report 6931178-3 (Version None)
Quarter: 2010Q3

REPORT INFORMATION
  Report Type: 
  Country: None (occurrence: None)
  Receive Date: 20100813
  Receipt Date: 20100804
  Transmission Date: 20110219
  Serious: Yes (Other)
  Sender: FDA-Public Use
  Company Number: TPA2010A04307

PATIENT
  Age: 53 Year
  Sex: Female
  Weight: 69.54 kg

DRUGS (2)
  1. DEXILANT [Suspect]
     Indication: GASTROOESOPHAGEAL REFLUX DISEASE
     Dosage: 60 MG, 1 IN 1 D, PER ORAL
     Route: 048
     Dates: start: 20100524, end: 20100624
  2. PROAIR HFA (PROCATEROL HYDROCHLORIDE) [Concomitant]

REACTIONS (2)
  - SPLENOMEGALY [None]
  - THROMBOCYTOPENIA [None]
